FAERS Safety Report 11530029 (Version 1)
Quarter: 2015Q3

REPORT INFORMATION
  Report Type: Spontaneous
  Country: US (occurrence: US)
  Receive Date: 20150921
  Receipt Date: 20150921
  Transmission Date: 20151125
  Serious: Yes (Other)
  Sender: FDA-Public Use
  Company Number: US-TAKEDA-TPA2013A03569

PATIENT

DRUGS (9)
  1. ACTOS [Suspect]
     Active Substance: PIOGLITAZONE HYDROCHLORIDE
     Dates: start: 200706, end: 200708
  2. ACTOS [Suspect]
     Active Substance: PIOGLITAZONE HYDROCHLORIDE
     Dates: start: 200708, end: 200908
  3. METFORMIN [Concomitant]
     Active Substance: METFORMIN HYDROCHLORIDE
     Dates: start: 200907, end: 201206
  4. LANTUS [Concomitant]
     Active Substance: INSULIN GLARGINE
     Dates: start: 201208, end: 201303
  5. JANUVIA [Concomitant]
     Active Substance: SITAGLIPTIN PHOSPHATE
     Dates: start: 200708, end: 201301
  6. AMARYL [Concomitant]
     Active Substance: GLIMEPIRIDE
     Dates: start: 200908
  7. BYETTA [Concomitant]
     Active Substance: EXENATIDE
     Dates: start: 200910, end: 201001
  8. ACTOS [Suspect]
     Active Substance: PIOGLITAZONE HYDROCHLORIDE
     Indication: TYPE 2 DIABETES MELLITUS
     Dates: start: 200606, end: 200706
  9. BYETTA [Concomitant]
     Active Substance: EXENATIDE
     Dates: start: 200909

REACTIONS (1)
  - Bladder cancer [Unknown]

NARRATIVE: CASE EVENT DATE: 200908
